FAERS Safety Report 5177135-1 (Version None)
Quarter: 2006Q4

REPORT INFORMATION
  Report Type: 
  Country: None (occurrence: None)
  Receive Date: 20061207
  Receipt Date: 20061128
  Transmission Date: 20070319
  Serious: Yes (Hospitalization, Other)
  Sender: FDA-Public Use
  Company Number: 2006147411

PATIENT
  Sex: Male

DRUGS (1)
  1. DIABINESE [Suspect]
     Indication: DIABETES MELLITUS
     Dosage: 250 MG (250 MG, 1 IN 1 D), ORAL
     Route: 048
     Dates: start: 20030101

REACTIONS (3)
  - CHOLECYSTECTOMY [None]
  - GALLBLADDER DISORDER [None]
  - PHARMACEUTICAL PRODUCT COMPLAINT [None]
